FAERS Safety Report 9703577 (Version 1)
Quarter: 2013Q4

REPORT INFORMATION
  Report Type: Spontaneous
  Country: US (occurrence: US)
  Receive Date: 20131122
  Receipt Date: 20131122
  Transmission Date: 20140711
  Serious: No
  Sender: FDA-Public Use
  Company Number: US-PFIZER INC-2013333299

PATIENT
  Sex: Female

DRUGS (4)
  1. QUILLIVANT XR [Suspect]
     Dosage: ^2MG^, UNK
  2. QUILLIVANT XR [Suspect]
     Dosage: ^4MG^, UNK
  3. QUILLIVANT XR [Suspect]
     Dosage: ^6MG^, UNK
  4. QUILLIVANT XR [Suspect]
     Dosage: ^8MG^, UNK

REACTIONS (1)
  - Drug effect incomplete [Unknown]
